FAERS Safety Report 23063010 (Version 1)
Quarter: 2023Q4

REPORT INFORMATION
  Report Type: Spontaneous
  Country: US (occurrence: None)
  Receive Date: 20231012
  Receipt Date: 20231012
  Transmission Date: 20240110
  Serious: Yes (Other)
  Sender: FDA-Public Use
  Company Number: None

PATIENT
  Age: 74 Year
  Sex: Female
  Weight: 115.65 kg

DRUGS (3)
  1. ELIQUIS [Suspect]
     Active Substance: APIXABAN
     Indication: Atrial appendage closure
     Dosage: FREQUENCY : TWICE A DAY;?
     Route: 048
     Dates: start: 20230901, end: 20231012
  2. ELIQUIS [Suspect]
     Active Substance: APIXABAN
     Indication: Embolism
  3. WARFARIN [Suspect]
     Active Substance: WARFARIN

REACTIONS (2)
  - Echocardiogram abnormal [None]
  - Contrast echocardiogram [None]

NARRATIVE: CASE EVENT DATE: 20231005
